FAERS Safety Report 12215637 (Version 1)
Quarter: 2016Q1

REPORT INFORMATION
  Report Type: Spontaneous
  Country: US (occurrence: US)
  Receive Date: 20160328
  Receipt Date: 20160328
  Transmission Date: 20160526
  Serious: No
  Sender: FDA-Public Use
  Company Number: US-AMNEAL PHARMACEUTICALS-2015AMN00147

PATIENT

DRUGS (1)
  1. AZATHIOPRINE. [Suspect]
     Active Substance: AZATHIOPRINE

REACTIONS (1)
  - Drug hypersensitivity [Unknown]
